FAERS Safety Report 6261758-2 (Version None)
Quarter: 2009Q3

REPORT INFORMATION
  Report Type: 
  Country: None (occurrence: None)
  Receive Date: 20090702
  Receipt Date: 20090311
  Transmission Date: 20100115
  Serious: No
  Sender: FDA-Public Use
  Company Number: 1000005137

PATIENT
  Age: 95 Year
  Sex: Male

DRUGS (4)
  1. BYSTOLIC [Suspect]
     Indication: ATRIAL FIBRILLATION
  2. COUMADIN [Concomitant]
  3. LASIX [Concomitant]
  4. FOSAMAX [Concomitant]

REACTIONS (1)
  - BLOOD POTASSIUM INCREASED [None]
